FAERS Safety Report 5486760-X (Version None)
Quarter: 2007Q4

REPORT INFORMATION
  Report Type: 
  Country: None (occurrence: None)
  Receive Date: 20071016
  Receipt Date: 20071012
  Transmission Date: 20080405
  Serious: Yes (Life-Threatening, Disabling)
  Sender: FDA-Public Use
  Company Number: A0687579A

PATIENT
  Sex: Female

DRUGS (5)
  1. LAMICTAL [Suspect]
     Indication: BIPOLAR DISORDER
     Route: 065
     Dates: start: 20001001
  2. EFFEXOR [Concomitant]
  3. TRILEPTAL [Concomitant]
  4. AMBIEN [Concomitant]
  5. SEROQUEL [Concomitant]

REACTIONS (3)
  - RASH [None]
  - SKIN DISORDER [None]
  - STAPHYLOCOCCAL INFECTION [None]
